FAERS Safety Report 4678880-4 (Version None)
Quarter: 2005Q2

REPORT INFORMATION
  Report Type: 
  Country: None (occurrence: None)
  Receive Date: 20050525
  Receipt Date: 20050317
  Transmission Date: 20051028
  Serious: No
  Sender: FDA-Public Use
  Company Number: 211383

PATIENT
  Sex: 0

DRUGS (1)
  1. RAPTIVA [Suspect]
     Indication: PSORIASIS
     Dosage: UNK UNK, UNKNOWN, SUBCUTANEOUS
     Route: 058

REACTIONS (1)
  - PSORIASIS [None]
